FAERS Safety Report 15072664 (Version 1)
Quarter: 2018Q2

REPORT INFORMATION
  Report Type: Spontaneous
  Country: PE (occurrence: PE)
  Receive Date: 20180627
  Receipt Date: 20180627
  Transmission Date: 20180711
  Serious: Yes (Disabling)
  Sender: FDA-Public Use
  Company Number: PE-AMGEN-PERSP2018084532

PATIENT
  Age: 75 Year
  Sex: Male

DRUGS (1)
  1. PROLIA [Suspect]
     Active Substance: DENOSUMAB
     Indication: PRODUCT USED FOR UNKNOWN INDICATION
     Dosage: 60 ML, CYCLICAL
     Route: 058
     Dates: start: 2014, end: 20171219

REACTIONS (1)
  - Upper limb fracture [Unknown]

NARRATIVE: CASE EVENT DATE: 2018
